FAERS Safety Report 10223871 (Version 2)
Quarter: 2014Q2

REPORT INFORMATION
  Report Type: Spontaneous
  Country: US (occurrence: US)
  Receive Date: 20140609
  Receipt Date: 20140609
  Transmission Date: 20141212
  Serious: No
  Sender: FDA-Public Use
  Company Number: US-DRREDDYS-USA/USA/14/0038259

PATIENT
  Age: 61 Year
  Sex: Female
  Weight: 81.6 kg

DRUGS (2)
  1. FEXOFENADINE HCL  OTC [Suspect]
     Indication: SINUS DISORDER
     Route: 048
     Dates: start: 20140218, end: 20140218
  2. ATORVASTATIN TABLETS 10MG, 20 MG + 40 MG (091650) [Concomitant]
     Indication: PRODUCT USED FOR UNKNOWN INDICATION
     Route: 065

REACTIONS (2)
  - Dizziness [Recovered/Resolved]
  - Extra dose administered [Unknown]
